FAERS Safety Report 10530227 (Version 2)
Quarter: 2015Q2

REPORT INFORMATION
  Report Type: Report from Study
  Country: JP (occurrence: JP)
  Receive Date: 20141021
  Receipt Date: 20150506
  Transmission Date: 20150821
  Serious: Yes (Hospitalization)
  Sender: FDA-Public Use
  Company Number: JP-PFIZER INC-2014282327

PATIENT
  Age: 68 Year
  Sex: Female
  Weight: 55.8 kg

DRUGS (12)
  1. TORISEL [Suspect]
     Active Substance: TEMSIROLIMUS
     Dosage: 25 MG, 1X/DAY
     Route: 041
     Dates: start: 20101224, end: 20101224
  2. TORISEL [Suspect]
     Active Substance: TEMSIROLIMUS
     Dosage: 25 MG, WEEKLY
     Route: 041
     Dates: start: 20110329, end: 20110427
  3. POLARAMINE [Concomitant]
     Active Substance: DEXCHLORPHENIRAMINE MALEATE
     Indication: PROPHYLAXIS
     Dosage: 5 MG, 1X/DAY (ON EVERY TEMSIROLIMUS ADMINISTRATION DATE)
     Route: 042
     Dates: start: 20101117
  4. VITAMINS NOS [Concomitant]
     Active Substance: VITAMINS
     Dosage: 5 UG, 3X/DAY
     Route: 048
     Dates: start: 20101111
  5. TORISEL [Suspect]
     Active Substance: TEMSIROLIMUS
     Indication: METASTATIC RENAL CELL CARCINOMA
     Dosage: 25 MG, WEEKLY
     Route: 041
     Dates: start: 20101117, end: 20101208
  6. TORISEL [Suspect]
     Active Substance: TEMSIROLIMUS
     Dosage: 25 MG, 1X/DAY
     Route: 041
     Dates: start: 20110107, end: 20110107
  7. TORISEL [Suspect]
     Active Substance: TEMSIROLIMUS
     Dosage: 25 MG, 1X/DAY
     Route: 041
     Dates: start: 20110121, end: 20110121
  8. TORISEL [Suspect]
     Active Substance: TEMSIROLIMUS
     Dosage: 25 MG, WEEKLY
     Route: 041
     Dates: start: 20110204, end: 20110218
  9. AMLODIN OD [Concomitant]
     Active Substance: AMLODIPINE BESYLATE
     Dosage: 5 MG, DAILY
     Route: 048
     Dates: start: 20101111
  10. NOVAMIN [Concomitant]
     Active Substance: PROCHLORPERAZINE MALEATE
     Dosage: 5 MG, 3X/DAY
     Route: 048
     Dates: start: 20101111
  11. MAGMITT [Concomitant]
     Active Substance: MAGNESIUM OXIDE
     Dosage: 990 MG, 3X/DAY
     Route: 048
     Dates: start: 20101111
  12. HYPEN [Concomitant]
     Active Substance: ETODOLAC
     Dosage: 200 MG, 2X/DAY
     Route: 048
     Dates: start: 20101111

REACTIONS (1)
  - Decreased appetite [Recovered/Resolved]

NARRATIVE: CASE EVENT DATE: 20110225
